FAERS Safety Report 6535204-5 (Version None)
Quarter: 2010Q1

REPORT INFORMATION
  Report Type: 
  Country: None (occurrence: None)
  Receive Date: 20100113
  Receipt Date: 20100104
  Transmission Date: 20100710
  Serious: Yes (Hospitalization)
  Sender: FDA-Public Use
  Company Number: JP-ELI_LILLY_AND_COMPANY-JP201001000519

PATIENT
  Sex: Female
  Weight: 72.8 kg

DRUGS (14)
  1. GEMCITABINE HCL [Suspect]
     Indication: PANCREATIC CARCINOMA
     Dosage: 1000 MG/M2, OTHER
     Route: 042
     Dates: start: 20091030, end: 20091225
  2. BLINDED THERAPY [Suspect]
     Indication: PANCREATIC CARCINOMA
     Dosage: 1 ML, OTHER
     Route: 058
     Dates: start: 20091030, end: 20091225
  3. BLOPRESS [Concomitant]
     Indication: HYPERTENSION
     Dosage: 4 MG, EACH MORNING
     Route: 048
     Dates: start: 20020101
  4. LIVALO [Concomitant]
     Indication: HYPERLIPIDAEMIA
     Dosage: 2 MG, EACH MORNING
     Route: 048
     Dates: start: 20020101
  5. TAKEPRON [Concomitant]
     Indication: REFLUX OESOPHAGITIS
     Dosage: 15 MG, EACH MORNING
     Route: 048
     Dates: start: 20020101
  6. GASTROM [Concomitant]
     Indication: GASTRIC ULCER
     Dosage: 1.5 G, EACH EVENING
     Route: 048
     Dates: start: 20020101
  7. OFLOXACIN [Concomitant]
     Indication: GLAUCOMA
     Dosage: UNK, 4/D
     Route: 047
     Dates: start: 20050101
  8. FLUMETHOLON [Concomitant]
     Indication: GLAUCOMA
     Dosage: UNK, 4/D
     Route: 047
     Dates: start: 20050101
  9. NEO-MEDROL EYE-EAR [Concomitant]
     Indication: GLAUCOMA
     Dosage: UNK, 2/D
     Route: 047
     Dates: start: 20050101
  10. TIMOPTOL-XE [Concomitant]
     Indication: GLAUCOMA
     Dosage: UNK, DAILY (1/D)
     Route: 047
     Dates: start: 20050101
  11. XALATAN [Concomitant]
     Indication: GLAUCOMA
     Dosage: UNK, 4/D
     Route: 047
     Dates: start: 20050101
  12. ACTOS [Concomitant]
     Indication: DIABETES MELLITUS
     Dosage: 15 MG, EACH MORNING
     Route: 048
     Dates: start: 20060101
  13. AMARYL [Concomitant]
     Indication: DIABETES MELLITUS
     Dosage: 1 MG, DAILY (1/D)
     Route: 048
     Dates: start: 20060101
  14. URSO 250 [Concomitant]
     Indication: LIVER DISORDER
     Dosage: 100 MG, 3/D
     Route: 048
     Dates: start: 20091114

REACTIONS (1)
  - PULMONARY THROMBOSIS [None]
